FAERS Safety Report 6238609-5 (Version None)
Quarter: 2009Q2

REPORT INFORMATION
  Report Type: 
  Country: None (occurrence: None)
  Receive Date: 20090622
  Receipt Date: 20090613
  Transmission Date: 20091009
  Serious: No
  Sender: FDA-Public Use
  Company Number: US-B.I. PHARMACEUTICALS,INC./RIDGEFIELD-2009-BP-07500PF

PATIENT
  Sex: Female
  Weight: 65.77 kg

DRUGS (9)
  1. SPIRIVA [Suspect]
     Indication: EMPHYSEMA
     Dosage: 18 MCG
     Route: 055
     Dates: start: 20090610
  2. SPIRIVA [Suspect]
     Indication: DYSPNOEA
  3. VARENICLINE [Suspect]
     Indication: SMOKING CESSATION THERAPY
     Dosage: 0.5 MG
     Route: 048
     Dates: start: 20090611
  4. SERTRALINE [Suspect]
     Indication: DEPRESSION
     Dosage: 50 MG
     Route: 048
     Dates: start: 20081201
  5. SERTRALINE [Suspect]
     Dosage: 100 MG
     Route: 048
     Dates: start: 20090101, end: 20090610
  6. SERTRALINE [Suspect]
     Dosage: 150 MG
     Route: 048
     Dates: start: 20090611
  7. BUSPAR [Concomitant]
  8. MOTRIN [Concomitant]
  9. TRAZODONE HCL [Concomitant]

REACTIONS (2)
  - DISTURBANCE IN ATTENTION [None]
  - LETHARGY [None]
